FAERS Safety Report 19742447 (Version 3)
Quarter: 2021Q3

REPORT INFORMATION
  Report Type: Spontaneous
  Country: JP (occurrence: JP)
  Receive Date: 20210825
  Receipt Date: 20210922
  Transmission Date: 20211014
  Serious: Yes (Hospitalization, Other)
  Sender: FDA-Public Use
  Company Number: JP-ASTELLAS-2021JP016349

PATIENT
  Age: 87 Year
  Sex: Male
  Weight: 52 kg

DRUGS (10)
  1. FEBURIC [Concomitant]
     Active Substance: FEBUXOSTAT
     Indication: HYPERURICAEMIA
     Route: 048
  2. AMLODIPINE [Concomitant]
     Active Substance: AMLODIPINE BESYLATE
     Indication: HYPERTENSION
     Route: 048
  3. BIO?THREE [Concomitant]
     Active Substance: HERBALS
     Indication: DIARRHOEA
     Dosage: 1 TABLET, THRICE DAILY
     Route: 048
  4. XTANDI [Suspect]
     Active Substance: ENZALUTAMIDE
     Indication: HORMONE-REFRACTORY PROSTATE CANCER
     Route: 048
     Dates: start: 20210603, end: 20210808
  5. URINORM [Concomitant]
     Active Substance: BENZBROMARONE
     Indication: HYPERURICAEMIA
     Route: 048
  6. TELTHIA [Concomitant]
     Indication: HYPERTENSION
     Dosage: UNK UNK, ONCE DAILY
     Route: 048
  7. ASPARA K [Concomitant]
     Active Substance: POTASSIUM ASPARTATE
     Indication: BLOOD CREATININE INCREASED
     Dosage: UNK UNK, UNKNOWN FREQ.
     Route: 065
     Dates: start: 20210808
  8. ASPARA K [Concomitant]
     Active Substance: POTASSIUM ASPARTATE
     Indication: BLOOD CALCIUM DECREASED
  9. BELSOMRA [Concomitant]
     Active Substance: SUVOREXANT
     Indication: INSOMNIA
     Route: 048
     Dates: start: 20191120
  10. ATENOLOL. [Concomitant]
     Active Substance: ATENOLOL
     Indication: HYPERTENSION
     Route: 048

REACTIONS (6)
  - Taste disorder [Recovering/Resolving]
  - Dehydration [Recovered/Resolved]
  - Pneumonia [Recovered/Resolved]
  - Hypokalaemia [Recovered/Resolved]
  - Decreased appetite [Recovering/Resolving]
  - Product use issue [Unknown]

NARRATIVE: CASE EVENT DATE: 20210603
